FAERS Safety Report 8495220-3 (Version None)
Quarter: 2012Q2

REPORT INFORMATION
  Report Type: 
  Country: None (occurrence: None)
  Receive Date: 20120628
  Receipt Date: 20120615
  Transmission Date: 20120825
  Serious: Yes (Other)
  Sender: FDA-Public Use
  Company Number: 2012P1044138

PATIENT
  Age: 65 Year
  Sex: Male

DRUGS (4)
  1. FLECAINIDE ACETATE [Suspect]
     Indication: ARRHYTHMIA
     Dosage: 100 MG;BID
  2. IRBESARTAN [Concomitant]
  3. BISOPROLOL FUMARATE [Concomitant]
  4. HYDROCHLOROTHIAZIDE [Concomitant]

REACTIONS (4)
  - NEUROPATHY PERIPHERAL [None]
  - GAIT DISTURBANCE [None]
  - TOXIC NEUROPATHY [None]
  - TOXICITY TO VARIOUS AGENTS [None]
